FAERS Safety Report 4346857-4 (Version None)
Quarter: 2004Q1

REPORT INFORMATION
  Report Type: 
  Country: None (occurrence: None)
  Receive Date: 20040329
  Receipt Date: 20031209
  Transmission Date: 20041129
  Serious: No
  Sender: FDA-Public Use
  Company Number: USA031254367

PATIENT
  Age: 7 Year
  Sex: Female
  Weight: 20 kg

DRUGS (2)
  1. STRATTERA [Suspect]
     Indication: BIPOLAR DISORDER
     Dosage: 50 MG/DAY
     Dates: start: 20031101
  2. DEPAKOTE [Concomitant]

REACTIONS (3)
  - MYDRIASIS [None]
  - PRESCRIBED OVERDOSE [None]
  - TREMOR [None]
